FAERS Safety Report 7533974-0 (Version None)
Quarter: 2011Q2

REPORT INFORMATION
  Report Type: 
  Country: None (occurrence: None)
  Receive Date: 20110608
  Receipt Date: 20060627
  Transmission Date: 20111010
  Serious: Yes (Hospitalization)
  Sender: FDA-Public Use
  Company Number: PHEH2006US08149

PATIENT
  Sex: Female

DRUGS (2)
  1. EXJADE [Suspect]
     Indication: BLOOD IRON INCREASED
     Dosage: 500 MG, 5QD
     Route: 048
     Dates: start: 20060524
  2. EXJADE [Suspect]
     Dosage: 2500 MG, QD
     Route: 048

REACTIONS (3)
  - OTITIS EXTERNA [None]
  - PSORIASIS [None]
  - CELLULITIS [None]
